FAERS Safety Report 13580140 (Version 2)
Quarter: 2017Q3

REPORT INFORMATION
  Report Type: Spontaneous
  Country: GB (occurrence: GB)
  Receive Date: 20170525
  Receipt Date: 20170706
  Transmission Date: 20171127
  Serious: Yes (Hospitalization)
  Sender: FDA-Public Use
  Company Number: GB-ASTRAZENECA-2017SE53360

PATIENT
  Age: 16 Year
  Sex: Female

DRUGS (5)
  1. LYRICA [Concomitant]
     Active Substance: PREGABALIN
     Indication: ANXIETY
  2. LYRICA [Concomitant]
     Active Substance: PREGABALIN
     Indication: PSYCHOTIC DISORDER
  3. RISPERIDONE. [Concomitant]
     Active Substance: RISPERIDONE
     Dosage: 7.0MG UNKNOWN
     Dates: start: 2016, end: 201612
  4. SEROQUEL [Suspect]
     Active Substance: QUETIAPINE FUMARATE
     Route: 048
  5. LYRICA [Concomitant]
     Active Substance: PREGABALIN
     Indication: POST-TRAUMATIC STRESS DISORDER

REACTIONS (1)
  - Condition aggravated [Not Recovered/Not Resolved]
